FAERS Safety Report 4674053-X (Version None)
Quarter: 2005Q2

REPORT INFORMATION
  Report Type: 
  Country: None (occurrence: None)
  Receive Date: 20050525
  Receipt Date: 20050513
  Transmission Date: 20051028
  Serious: Yes (Life-Threatening, Hospitalization)
  Sender: FDA-Public Use
  Company Number: 2005-01-0690

PATIENT
  Age: 49 Year
  Sex: Male
  Weight: 81.6475 kg

DRUGS (7)
  1. PEG-INTRON [Suspect]
     Indication: HEPATITIS C
     Dosage: SEE IMAGE
     Route: 058
     Dates: start: 20041116, end: 20041203
  2. PEG-INTRON [Suspect]
     Indication: HEPATITIS C
     Dosage: SEE IMAGE
     Route: 058
     Dates: start: 20040201
  3. PEG-INTRON [Suspect]
     Indication: HEPATITIS C
     Dosage: SEE IMAGE
     Route: 058
     Dates: start: 20041116
  4. PEG-INTRON [Suspect]
     Indication: HEPATITIS C
     Dosage: SEE IMAGE
     Route: 058
     Dates: start: 20041201
  5. RIBAVIRIN [Suspect]
     Indication: HEPATITIS C
     Dosage: 600 MG QWK ORAL
     Route: 048
     Dates: start: 20041116
  6. NAPROXEN [Suspect]
     Indication: INFLUENZA LIKE ILLNESS
     Dosage: 375 MG BID PRN ORAL
     Route: 048
     Dates: start: 20041116, end: 20041203
  7. METHADONE [Concomitant]

REACTIONS (5)
  - GASTRITIS EROSIVE [None]
  - HYPOTENSION [None]
  - INAPPROPRIATE SCHEDULE OF DRUG ADMINISTRATION [None]
  - INFLUENZA LIKE ILLNESS [None]
  - UPPER GASTROINTESTINAL HAEMORRHAGE [None]
